FAERS Safety Report 4747160-0 (Version None)
Quarter: 2005Q3

REPORT INFORMATION
  Report Type: 
  Country: None (occurrence: None)
  Receive Date: 20050815
  Receipt Date: 20050802
  Transmission Date: 20060218
  Serious: Yes (Other)
  Sender: FDA-Public Use
  Company Number: USA0508104338

PATIENT
  Age: 42 Year
  Sex: Female

DRUGS (3)
  1. FORTEO [Suspect]
     Dates: start: 20040501
  2. HORMONE REPLACEMENT THERAPY [Concomitant]
  3. CALCIUM GLUCONATE [Concomitant]

REACTIONS (4)
  - BLOOD CALCIUM INCREASED [None]
  - MYELODYSPLASTIC SYNDROME [None]
  - PHARMACEUTICAL PRODUCT COMPLAINT [None]
  - SPINAL FRACTURE [None]
